FAERS Safety Report 11696703 (Version 1)
Quarter: 2015Q4

REPORT INFORMATION
  Report Type: Spontaneous
  Country: JP (occurrence: JP)
  Receive Date: 20151104
  Receipt Date: 20151104
  Transmission Date: 20160304
  Serious: Yes (Hospitalization, Disabling, Other)
  Sender: FDA-Public Use
  Company Number: JP-NOVOPROD-468808

PATIENT
  Age: 58 Year
  Sex: Female
  Weight: 46.6 kg

DRUGS (2)
  1. NOVORAPID [Suspect]
     Active Substance: INSULIN ASPART
     Indication: SUICIDE ATTEMPT
     Dosage: UNKNOWN
     Route: 058
     Dates: start: 20150321, end: 20150321
  2. NOVORAPID [Suspect]
     Active Substance: INSULIN ASPART
     Indication: OFF LABEL USE

REACTIONS (3)
  - Suicide attempt [Unknown]
  - Hypoglycaemic encephalopathy [Not Recovered/Not Resolved]
  - Off label use [Unknown]

NARRATIVE: CASE EVENT DATE: 201503
